FAERS Safety Report 10235113 (Version 1)
Quarter: 2014Q2

REPORT INFORMATION
  Report Type: Spontaneous
  Country: US (occurrence: US)
  Receive Date: 20140613
  Receipt Date: 20140613
  Transmission Date: 20141212
  Serious: No
  Sender: FDA-Public Use
  Company Number: US-LUNDBECK-DKLU1100593

PATIENT
  Sex: 0

DRUGS (1)
  1. CLOBAZAM [Suspect]
     Indication: EPILEPSY

REACTIONS (1)
  - Fatigue [Unknown]
